FAERS Safety Report 6831063-1 (Version None)
Quarter: 2010Q3

REPORT INFORMATION
  Report Type: 
  Country: None (occurrence: None)
  Receive Date: 20100707
  Receipt Date: 20100627
  Transmission Date: 20110219
  Serious: Yes (Death)
  Sender: FDA-Public Use
  Company Number: AXC-2010-000173

PATIENT
  Age: 70 Year
  Sex: Female

DRUGS (1)
  1. MESALAMINE [Suspect]
     Indication: CROHN'S DISEASE
     Dosage: 500 MG, QID

REACTIONS (8)
  - BIOPSY LUNG ABNORMAL [None]
  - DIFFUSE ALVEOLAR DAMAGE [None]
  - DRUG TOXICITY [None]
  - FIBROSIS [None]
  - INAPPROPRIATE SCHEDULE OF DRUG ADMINISTRATION [None]
  - INTERSTITIAL LUNG DISEASE [None]
  - LOWER RESPIRATORY TRACT INFLAMMATION [None]
  - LUNG INFILTRATION [None]
